FAERS Safety Report 25085237 (Version 1)
Quarter: 2025Q1

REPORT INFORMATION
  Report Type: Spontaneous
  Country: US (occurrence: None)
  Receive Date: 20250314
  Receipt Date: 20250314
  Transmission Date: 20250408
  Serious: Yes (Death)
  Sender: FDA-CTU
  Company Number: None

PATIENT
  Age: 79 Year
  Sex: Female
  Weight: 42.3 kg

DRUGS (6)
  1. PROLIA [Suspect]
     Active Substance: DENOSUMAB
     Indication: Osteoporosis
     Route: 058
  2. Levothyroxine 0.075mg tablets [Concomitant]
  3. ferrous sulfate 325mg tablets [Concomitant]
  4. potassium cl 10meq tablets [Concomitant]
  5. MIRTAZAPINE [Concomitant]
     Active Substance: MIRTAZAPINE
  6. CLONAZEPAM [Concomitant]
     Active Substance: CLONAZEPAM

REACTIONS (1)
  - Dementia Alzheimer^s type [None]

NARRATIVE: CASE EVENT DATE: 20250303
